FAERS Safety Report 10185015 (Version 2)
Quarter: 2014Q2

REPORT INFORMATION
  Report Type: Spontaneous
  Country: FI (occurrence: FI)
  Receive Date: 20140521
  Receipt Date: 20140521
  Transmission Date: 20141212
  Serious: Yes (Hospitalization)
  Sender: FDA-Public Use
  Company Number: PHHY2014FI036459

PATIENT
  Age: 69 Year
  Sex: Female

DRUGS (1)
  1. LIPCUT [Suspect]
     Indication: HYPERCHOLESTEROLAEMIA
     Dosage: 10 MG, QD
     Dates: start: 20020902, end: 20101101

REACTIONS (11)
  - Abdominal discomfort [Recovering/Resolving]
  - Paraesthesia oral [Not Recovered/Not Resolved]
  - Dysgeusia [Unknown]
  - Peripheral coldness [Unknown]
  - Pain [Unknown]
  - Chills [Unknown]
  - Sleep disorder [Unknown]
  - Neuralgia [Not Recovered/Not Resolved]
  - Paraesthesia [Not Recovered/Not Resolved]
  - Diarrhoea [Unknown]
  - Nausea [Unknown]
